FAERS Safety Report 10164615 (Version 1)
Quarter: 2014Q2

REPORT INFORMATION
  Report Type: Spontaneous
  Country: US (occurrence: US)
  Receive Date: 20140510
  Receipt Date: 20140510
  Transmission Date: 20141212
  Serious: No
  Sender: FDA-Public Use
  Company Number: US-BRISTOL-MYERS SQUIBB COMPANY-20117172

PATIENT
  Age: 64 Year
  Sex: Male
  Weight: 113.38 kg

DRUGS (6)
  1. BYDUREON [Suspect]
     Indication: TYPE 2 DIABETES MELLITUS
     Route: 058
     Dates: start: 2013
  2. LIPITOR [Concomitant]
     Route: 048
  3. COZAAR [Concomitant]
     Route: 048
  4. HUMALOG [Concomitant]
     Route: 058
  5. LANTUS [Concomitant]
     Dosage: 50 TO 60 UNITS AT BED TIME
     Route: 058
  6. LANTUS [Concomitant]
     Dosage: 1DF:50 TO 60 UNITS AT BEDTIME EACH DAY
     Route: 058

REACTIONS (3)
  - Skin discolouration [Unknown]
  - Rash macular [Unknown]
  - Injection site haemorrhage [Unknown]
